FAERS Safety Report 8065681-2 (Version None)
Quarter: 2012Q1

REPORT INFORMATION
  Report Type: 
  Country: None (occurrence: None)
  Receive Date: 20120124
  Receipt Date: 20120124
  Transmission Date: 20120608
  Serious: Yes (Hospitalization)
  Sender: FDA-Public Use
  Company Number: US-PFIZER INC-2012017371

PATIENT
  Sex: Female
  Weight: 87.075 kg

DRUGS (6)
  1. CHANTIX [Suspect]
     Indication: SMOKING CESSATION THERAPY
     Dosage: UNK
     Route: 048
     Dates: start: 20110101, end: 20110729
  2. FELODIPINE [Concomitant]
     Indication: BLOOD PRESSURE ABNORMAL
     Dosage: 10 MG, UNK
  3. SIMVASTATIN [Concomitant]
     Dosage: 40 MG, DAILY
  4. LOTENSIN HCT [Concomitant]
     Indication: BLOOD CHOLESTEROL INCREASED
     Dosage: [BENAZEPRIL HYDROCHLORIDE 20MG]/[HYDROCHLOROTHIAZIDE12.5MG]
  5. METFORMIN [Concomitant]
     Indication: DIABETES MELLITUS
     Dosage: 500 MG, UNK
  6. MELOXICAM [Concomitant]
     Indication: BACK PAIN
     Dosage: 50 MG, UNK

REACTIONS (1)
  - ARTHROPATHY [None]
